FAERS Safety Report 19303291 (Version 1)
Quarter: 2021Q2

REPORT INFORMATION
  Report Type: Spontaneous
  Country: US (occurrence: US)
  Receive Date: 20210525
  Receipt Date: 20210525
  Transmission Date: 20210717
  Serious: No
  Sender: FDA-Public Use
  Company Number: US-UPSHER-SMITH LABORATORIES, LLC-2021USL00059

PATIENT
  Age: 74 Year
  Sex: Female

DRUGS (1)
  1. NYAMYC [Suspect]
     Active Substance: NYSTATIN
     Indication: FUNGAL SKIN INFECTION
     Dosage: UNK UNK, 2X/DAY (MORNING AND NIGHT)
     Route: 061
     Dates: start: 202102, end: 202102

REACTIONS (4)
  - Respiration abnormal [Recovered/Resolved]
  - Fungal skin infection [Not Recovered/Not Resolved]
  - Fatigue [Not Recovered/Not Resolved]
  - Chills [Not Recovered/Not Resolved]

NARRATIVE: CASE EVENT DATE: 202102
